FAERS Safety Report 6642140-2 (Version None)
Quarter: 2010Q1

REPORT INFORMATION
  Report Type: 
  Country: None (occurrence: None)
  Receive Date: 20100319
  Receipt Date: 20100315
  Transmission Date: 20100710
  Serious: Yes (Hospitalization, Disabling)
  Sender: FDA-Public Use
  Company Number: BR-BAYER-200912704LA

PATIENT
  Age: 41 Year
  Sex: Male

DRUGS (6)
  1. BETAFERON [Suspect]
     Indication: MULTIPLE SCLEROSIS
     Route: 058
     Dates: start: 20070801, end: 20081201
  2. BETAFERON [Suspect]
     Route: 058
     Dates: start: 20090301, end: 20090801
  3. BETAFERON [Suspect]
     Route: 058
     Dates: start: 20091020
  4. BACLOFEN [Concomitant]
     Indication: JOINT STIFFNESS
     Dosage: TOTAL DAILY DOSE: 20 MG
     Route: 048
     Dates: start: 20070301
  5. FLUOXETINE HCL [Concomitant]
     Indication: NERVOUSNESS
     Dosage: TOTAL DAILY DOSE: 20 MG
     Route: 048
     Dates: start: 20070301
  6. OMEPRAZOLE [Concomitant]
     Indication: CONSTIPATION
     Dosage: TOTAL DAILY DOSE: 20 MG
     Route: 048
     Dates: start: 20070201

REACTIONS (10)
  - ABDOMINAL RIGIDITY [None]
  - BURNING SENSATION [None]
  - DIPLEGIA [None]
  - DYSGEUSIA [None]
  - HYPOAESTHESIA [None]
  - MICTURITION URGENCY [None]
  - MULTIPLE SCLEROSIS [None]
  - MULTIPLE SCLEROSIS RELAPSE [None]
  - SPEECH DISORDER [None]
  - URINARY RETENTION [None]
